FAERS Safety Report 4760919-9 (Version None)
Quarter: 2005Q3

REPORT INFORMATION
  Report Type: 
  Country: None (occurrence: None)
  Receive Date: 20050902
  Receipt Date: 20050824
  Transmission Date: 20060218
  Serious: Yes (Life-Threatening, Hospitalization, Disabling, Other)
  Sender: FDA-Public Use
  Company Number: PL-ABBOTT-05P-129-0309496-00

PATIENT
  Sex: Male
  Weight: 45 kg

DRUGS (4)
  1. KALETRA [Suspect]
     Indication: HIV INFECTION
     Dates: start: 20050628, end: 20050824
  2. KALETRA [Suspect]
     Dates: start: 20050628, end: 20050824
  3. FLUCONAZOLE [Concomitant]
     Indication: NEUROLOGICAL INFECTION
     Dates: start: 20050613
  4. TRIMETOPROM/SULFAMETOXAZOL [Concomitant]
     Dates: start: 20050613

REACTIONS (7)
  - BRONCHITIS [None]
  - EXOPHTHALMOS [None]
  - HEADACHE [None]
  - INTRACRANIAL PRESSURE INCREASED [None]
  - MYDRIASIS [None]
  - NUCLEAR MAGNETIC RESONANCE IMAGING BRAIN ABNORMAL [None]
  - TUBERCULOSIS [None]
